FAERS Safety Report 5404826-7 (Version None)
Quarter: 2007Q3

REPORT INFORMATION
  Report Type: 
  Country: None (occurrence: None)
  Receive Date: 20070803
  Receipt Date: 20070731
  Transmission Date: 20080115
  Serious: Yes (Death, Hospitalization)
  Sender: FDA-Public Use
  Company Number: PHBS2007SE12755

PATIENT
  Age: 34 Year
  Sex: Female

DRUGS (15)
  1. LEPONEX [Suspect]
     Dosage: 300 MG/D
     Route: 048
     Dates: start: 19990101, end: 20060718
  2. LEPONEX [Suspect]
     Dosage: 200 MG/D
     Route: 048
     Dates: start: 20070619
  3. SERTRALINE [Suspect]
     Dosage: 150 MG/D
     Route: 048
     Dates: start: 20040512, end: 20060726
  4. SERETIDE DISKUS [Concomitant]
  5. CLOPIXOL DEPOT [Concomitant]
  6. KESTINE [Concomitant]
     Dosage: 10 MG/D
     Route: 048
  7. ZOPIKLON NM PHARMA [Concomitant]
  8. TERRA-CORTRIL [Concomitant]
  9. NOZINAN [Concomitant]
     Dosage: 25 MG/D
     Route: 048
  10. AKINETON [Concomitant]
     Dosage: 2 MG/D
     Route: 048
  11. DEPO-PROVERA [Concomitant]
  12. HERMOLEPSIN [Concomitant]
     Dosage: 200 MG/D
     Route: 048
  13. XANOR [Concomitant]
     Dosage: 0.5 MG/D
     Route: 048
  14. VENTOLIN [Concomitant]
  15. ACETYLCYSTEIN AL [Concomitant]
     Dosage: 200 MG/D
     Route: 048

REACTIONS (17)
  - ALANINE AMINOTRANSFERASE INCREASED [None]
  - ASPARTATE AMINOTRANSFERASE INCREASED [None]
  - ASTHMA [None]
  - BLOOD CREATINE PHOSPHOKINASE INCREASED [None]
  - BLOOD LACTATE DEHYDROGENASE INCREASED [None]
  - C-REACTIVE PROTEIN INCREASED [None]
  - CONDITION AGGRAVATED [None]
  - DECREASED ACTIVITY [None]
  - HYPERHIDROSIS [None]
  - IMPAIRED SELF-CARE [None]
  - PULMONARY EMBOLISM [None]
  - PYREXIA [None]
  - RESTLESS LEGS SYNDROME [None]
  - SALIVARY HYPERSECRETION [None]
  - STATUS EPILEPTICUS [None]
  - TRANSAMINASES INCREASED [None]
  - URINARY TRACT INFECTION [None]
